FAERS Safety Report 9058536 (Version 1)
Quarter: 2013Q1

REPORT INFORMATION
  Report Type: Report from Study
  Country: CA (occurrence: CA)
  Receive Date: 20130211
  Receipt Date: 20130211
  Transmission Date: 20140127
  Serious: Yes (Hospitalization)
  Sender: FDA-Public Use
  Company Number: CA-JNJFOC-20130200551

PATIENT
  Age: 79 None
  Sex: Male
  Weight: 62 kg

DRUGS (11)
  1. REMICADE [Suspect]
     Indication: CROHN^S DISEASE
     Route: 042
     Dates: start: 20120831, end: 20130104
  2. IMURAN [Suspect]
     Indication: PRODUCT USED FOR UNKNOWN INDICATION
     Route: 048
  3. CALTRATE [Concomitant]
     Route: 048
  4. CENTRUM NOS [Concomitant]
     Route: 048
  5. ASA [Concomitant]
     Route: 048
  6. DEXILANT [Concomitant]
     Route: 048
  7. FERROUS GLUCONATE [Concomitant]
     Route: 048
  8. K DUR [Concomitant]
     Route: 048
  9. VITAMIN B3 [Concomitant]
     Route: 048
  10. LORAZEPAM [Concomitant]
     Route: 048
  11. ALL OTHER THERAPEUTICS [Concomitant]
     Route: 048

REACTIONS (4)
  - Bone marrow failure [Unknown]
  - Dyspnoea [Unknown]
  - Asthenia [Unknown]
  - Pyrexia [Unknown]
